FAERS Safety Report 8235791-5 (Version None)
Quarter: 2012Q1

REPORT INFORMATION
  Report Type: 
  Country: None (occurrence: None)
  Receive Date: 20120326
  Receipt Date: 20120322
  Transmission Date: 20120608
  Serious: Yes (Other)
  Sender: FDA-Public Use
  Company Number: US-PFIZER INC-2012075285

PATIENT
  Sex: Female
  Weight: 58.957 kg

DRUGS (2)
  1. CHANTIX [Suspect]
     Dosage: 0.5 MG, 2X/DAY
     Route: 048
     Dates: start: 20120301, end: 20120315
  2. CHANTIX [Suspect]
     Indication: SMOKING CESSATION THERAPY
     Dosage: 0.5 MG, DAILY
     Route: 048
     Dates: start: 20120308, end: 20120301

REACTIONS (7)
  - MOOD SWINGS [None]
  - NAUSEA [None]
  - DYSPEPSIA [None]
  - ANXIETY [None]
  - ARTERIAL STENT INSERTION [None]
  - ABDOMINAL DISCOMFORT [None]
  - IRRITABILITY [None]
